FAERS Safety Report 24658222 (Version 1)
Quarter: 2024Q4

REPORT INFORMATION
  Report Type: Spontaneous
  Country: AE (occurrence: AE)
  Receive Date: 20241125
  Receipt Date: 20241125
  Transmission Date: 20250114
  Serious: Yes (Hospitalization)
  Sender: CATALYST PHARMA
  Company Number: AE-CATALYSTPHARMACEUTICALPARTNERS-AE-CATA-24-01350

PATIENT
  Age: 35 Year
  Sex: Female

DRUGS (2)
  1. FYCOMPA [Suspect]
     Active Substance: PERAMPANEL
     Indication: Epilepsy
     Dosage: UNKNOWN
     Route: 048
  2. FYCOMPA [Suspect]
     Active Substance: PERAMPANEL
     Dosage: 160 MILLIGRAM(S), 1 IN 1 TOTAL
     Route: 048

REACTIONS (5)
  - Generalised tonic-clonic seizure [Recovered/Resolved]
  - Intentional overdose [Recovered/Resolved]
  - Suicide attempt [Recovered/Resolved]
  - Depressive symptom [Unknown]
  - Suicidal ideation [Unknown]
